FAERS Safety Report 9592383 (Version 1)
Quarter: 2013Q3

REPORT INFORMATION
  Report Type: Spontaneous
  Country: US (occurrence: None)
  Receive Date: 20130930
  Receipt Date: 20130930
  Transmission Date: 20140515
  Serious: Yes (Other)
  Sender: FDA-Public Use
  Company Number: 1000046909

PATIENT
  Age: 86 Year
  Sex: Female

DRUGS (9)
  1. LINZESS (LINACLOTIDE) (145 MICROGRAM, CAPSULES) [Suspect]
     Indication: CONSTIPATION
     Dosage: 145 MCG (145MCG, 1 IN 1
     Dates: start: 20130627
  2. ZIAC (BISOPROLOL, HYDROCHLOROTHIAZIDE) (BISOPROLOL, HYDROCHLOROTHIAZIDE) [Concomitant]
  3. SYNTHROID (LEVOTHYROXINE SODIUM) (LEVOTHYROXINE SODIUM) [Concomitant]
  4. CITRACAL (CALCIUM CITRATE) (CALCIUM CITRATE) [Concomitant]
  5. FISH OIL (FISH OIL) [Concomitant]
  6. ASPIRIN (ACETYLSALICYLIC ACID) (ACETYLSALICYLIC ACID) [Concomitant]
  7. VIT D (ERGOCALCIFEROL) (ERGOCALCIFEROL) [Concomitant]
  8. MAGNESIUM (MAGNESIUM) (MAGNESIUM) [Concomitant]
  9. PRILOSEC (OMEPRAZOLE) (OMEPRAZOLE) [Concomitant]

REACTIONS (1)
  - Diarrhoea [None]
